FAERS Safety Report 16367899 (Version 1)
Quarter: 2019Q2

REPORT INFORMATION
  Report Type: Spontaneous
  Country: US (occurrence: US)
  Receive Date: 20190529
  Receipt Date: 20190529
  Transmission Date: 20190711
  Serious: No
  Sender: FDA-Public Use
  Company Number: PHEH2019US022698

PATIENT
  Sex: Male

DRUGS (2)
  1. MEKINIST [Suspect]
     Active Substance: TRAMETINIB DIMETHYL SULFOXIDE
     Indication: AMELOBLASTOMA
     Dosage: 2 MG, QD
     Route: 048
     Dates: start: 20180716
  2. TAFINLAR [Suspect]
     Active Substance: DABRAFENIB MESYLATE
     Indication: BENIGN BONE NEOPLASM
     Dosage: 150 MG, Q12H
     Route: 048
     Dates: start: 20180716

REACTIONS (4)
  - Cough [Unknown]
  - Oropharyngeal pain [Unknown]
  - Sinusitis [Unknown]
  - Lung disorder [Unknown]
